FAERS Safety Report 15525502 (Version 2)
Quarter: 2020Q4

REPORT INFORMATION
  Report Type: Report from Study
  Country: JP (occurrence: JP)
  Receive Date: 20181018
  Receipt Date: 20201028
  Transmission Date: 20210113
  Serious: Yes (Other)
  Sender: FDA-Public Use
  Company Number: JP-GLAXOSMITHKLINE-JP2018JPN184801

PATIENT
  Age: 47 Year
  Sex: Female
  Weight: 51 kg

DRUGS (5)
  1. CALTAN [Concomitant]
     Active Substance: CALCIUM CARBONATE
  2. CARVEDILOL. [Concomitant]
     Active Substance: CARVEDILOL
  3. BELIMUMAB SUBCUTANEOUS [Suspect]
     Active Substance: BELIMUMAB
     Indication: SYSTEMIC LUPUS ERYTHEMATOSUS
     Dosage: 200 MG, WE
     Route: 058
     Dates: start: 20180815, end: 20180925
  4. PREDNISOLONE. [Concomitant]
     Active Substance: PREDNISOLONE
     Indication: SYSTEMIC LUPUS ERYTHEMATOSUS
     Dosage: 9 MG, 1D
     Route: 048
     Dates: start: 20160816
  5. WARFARIN (JAPANESE TRADENAME) [Concomitant]
     Active Substance: WARFARIN POTASSIUM

REACTIONS (2)
  - Necrosis [Unknown]
  - Condition aggravated [Unknown]
